FAERS Safety Report 4379712-4 (Version None)
Quarter: 2004Q2

REPORT INFORMATION
  Report Type: 
  Country: None (occurrence: None)
  Receive Date: 20040614
  Receipt Date: 20040602
  Transmission Date: 20050107
  Serious: Yes (Hospitalization)
  Sender: FDA-Public Use
  Company Number: CA-JNJFOC-20040601273

PATIENT
  Age: 58 Year
  Sex: Male
  Weight: 92.9874 kg

DRUGS (12)
  1. REMICADE (INFLIXIMAB, RECOMBINANT) LYOPHILIZED POWDER [Suspect]
     Indication: DRUG USE FOR UNKNOWN INDICATION
     Dosage: 400 MG, 1 IN 6 WEEK, INTRAVENOUS
     Route: 042
     Dates: start: 20040421
  2. PREDNISONE [Concomitant]
  3. ARAVA [Concomitant]
  4. AMITRIPTYLINE HCL [Concomitant]
  5. AVANDIA [Concomitant]
  6. GLYBURIDE (GLIBENCLAMIDE) TABLETS [Concomitant]
  7. FLOMAX [Concomitant]
  8. NOVASEN (ACETYLSALICYLIC ACID) [Concomitant]
  9. METFORMIN HCL [Concomitant]
  10. PANTOLOC (PANTOPRAZOLE) [Concomitant]
  11. ALTACE [Concomitant]
  12. VITAMIN B3 (B-KOMPLEX ^LECIVA^) [Concomitant]

REACTIONS (3)
  - CHEST PAIN [None]
  - EYE HAEMORRHAGE [None]
  - PAIN IN JAW [None]
